FAERS Safety Report 5421922-9 (Version None)
Quarter: 2007Q3

REPORT INFORMATION
  Report Type: 
  Country: None (occurrence: None)
  Receive Date: 20070822
  Receipt Date: 20070813
  Transmission Date: 20080115
  Serious: Yes (Other)
  Sender: FDA-Public Use
  Company Number: US-JNJFOC-20070605090

PATIENT
  Sex: Female
  Weight: 104.33 kg

DRUGS (5)
  1. FENTANYL TRANSDERMAL SYSTEM [Suspect]
     Route: 062
  2. FENTANYL TRANSDERMAL SYSTEM [Suspect]
     Indication: PAIN
     Route: 062
  3. LOTENSIN [Concomitant]
     Indication: BLOOD PRESSURE
     Route: 048
  4. VITAMIN B-12 [Concomitant]
     Dosage: AS NEEDED
     Route: 060
  5. VICODIN [Concomitant]
     Indication: BREAKTHROUGH PAIN
     Dosage: 7.5/500 EVERY 8 HOURS AS NEEDED
     Route: 048

REACTIONS (3)
  - DIABETES MELLITUS [None]
  - PHARMACEUTICAL PRODUCT COMPLAINT [None]
  - WRONG TECHNIQUE IN DRUG USAGE PROCESS [None]
